FAERS Safety Report 24805455 (Version 1)
Quarter: 2025Q1

REPORT INFORMATION
  Report Type: Spontaneous
  Country: FR (occurrence: FR)
  Receive Date: 20250103
  Receipt Date: 20250103
  Transmission Date: 20250408
  Serious: Yes (Hospitalization)
  Sender: ALEXION PHARMACEUTICALS
  Company Number: None

PATIENT
  Age: 3 Month
  Weight: 5.92 kg

DRUGS (4)
  1. NIRSEVIMAB [Suspect]
     Active Substance: NIRSEVIMAB
     Indication: Respiratory syncytial virus immunisation
  2. NIRSEVIMAB [Suspect]
     Active Substance: NIRSEVIMAB
     Route: 030
  3. NIRSEVIMAB [Suspect]
     Active Substance: NIRSEVIMAB
  4. NIRSEVIMAB [Suspect]
     Active Substance: NIRSEVIMAB
     Route: 030

REACTIONS (1)
  - Diarrhoea [Recovered/Resolved]
